FAERS Safety Report 8231508 (Version 2)
Quarter: 2012Q4

REPORT INFORMATION
  Report Type: 
  Country: US (occurrence: US)
  Receive Date: 20111106
  Receipt Date: 20121107
  Transmission Date: 20130627
  Serious: Yes (Other)
  Sender: FDA-Public Use
  Company Number: US-AMGEN-USASP2011045632

PATIENT
  Age: 62 Year
  Sex: Female

DRUGS (2)
  1. ENBREL [Suspect]
     Indication: RHEUMATOID ARTHRITIS
     Dosage: 50 mg, qwk
     Dates: start: 20110731, end: 20110828
  2. METHOTREXATE [Concomitant]
     Dosage: 1 mg, qwk
     Dates: start: 2010

REACTIONS (2)
  - Tooth infection [Unknown]
  - Osteomyelitis [Not Recovered/Not Resolved]
